FAERS Safety Report 7475861-2 (Version None)
Quarter: 2011Q2

REPORT INFORMATION
  Report Type: 
  Country: None (occurrence: None)
  Receive Date: 20110504
  Receipt Date: 20110420
  Transmission Date: 20111010
  Serious: Yes (Hospitalization)
  Sender: FDA-Public Use
  Company Number: 031718

PATIENT

DRUGS (4)
  1. ARAVA [Concomitant]
  2. PREDNISONE [Concomitant]
  3. CIMZIA [Suspect]
     Dosage: SUBCUTANEOUS
     Route: 058
  4. METHOTREXATE [Concomitant]

REACTIONS (1)
  - PNEUMOCYSTIS JIROVECI PNEUMONIA [None]
